FAERS Safety Report 9702060 (Version 1)
Quarter: 2013Q4

REPORT INFORMATION
  Report Type: Spontaneous
  Country: MX (occurrence: MX)
  Receive Date: 20131121
  Receipt Date: 20131121
  Transmission Date: 20140711
  Serious: Yes (Other)
  Sender: FDA-Public Use
  Company Number: PHHY2013MX133451

PATIENT
  Age: 68 Year
  Sex: Female

DRUGS (8)
  1. CO-DIOVAN [Suspect]
     Dosage: UNK UKN, UNK
  2. ISCOVER [Concomitant]
     Dosage: 1 UKN(75MG), DAILY
     Dates: start: 201308
  3. LAMICTAL [Concomitant]
     Dosage: 2 UKN(25MG), DAILY
     Dates: start: 201308
  4. LIPITOR [Concomitant]
     Dosage: UNK UKN, QD(NIGHTS)
     Dates: start: 201307
  5. SOMAZINA [Concomitant]
     Dosage: 1 UKN(500MG), DAILY
     Dates: start: 201308
  6. NITRODERM [Concomitant]
     Dosage: 2 DF(5MG), DAILY
     Dates: start: 201308
  7. VITAMIN A [Concomitant]
     Dosage: 2 UKN(100MG), DAILY
     Dates: start: 201308
  8. KRIADEX [Concomitant]
     Dosage: 7 DF(2.5MG), DAILY
     Dates: start: 201308

REACTIONS (4)
  - Diabetes mellitus [Not Recovered/Not Resolved]
  - Movement disorder [Not Recovered/Not Resolved]
  - Pain [Not Recovered/Not Resolved]
  - Stress [Not Recovered/Not Resolved]
